FAERS Safety Report 6529135-4 (Version None)
Quarter: 2010Q1

REPORT INFORMATION
  Report Type: 
  Country: None (occurrence: None)
  Receive Date: 20100107
  Receipt Date: 20100101
  Transmission Date: 20100710
  Serious: Yes (Other)
  Sender: FDA-Public Use
  Company Number: US-RB-000078-10

PATIENT
  Age: 9 Year
  Sex: Male
  Weight: 29.25 kg

DRUGS (1)
  1. MUCINEX MINI MELTS [Suspect]
     Dosage: TOOK 1 PACKET
     Route: 048
     Dates: start: 20100101

REACTIONS (1)
  - EPISTAXIS [None]
